FAERS Safety Report 7178975-X (Version None)
Quarter: 2010Q4

REPORT INFORMATION
  Report Type: 
  Country: None (occurrence: None)
  Receive Date: 20101217
  Receipt Date: 20101217
  Transmission Date: 20110411
  Serious: No
  Sender: FDA-Public Use
  Company Number: None

PATIENT
  Sex: Male
  Weight: 10.7 kg

DRUGS (8)
  1. PEG-L-ASPARGINASE (PEGASPARGASE, ONCOSPAR) [Suspect]
     Dosage: 2400 IU
     Dates: end: 20101005
  2. THIOGUANINE [Suspect]
     Dosage: 400 MG
     Dates: end: 20101004
  3. VINCRISTINE SULFATE [Suspect]
     Dosage: 3.59 MG
     Dates: end: 20101012
  4. CYCLOPHOSPHAMIDE [Suspect]
     Dosage: 470 MG
     Dates: end: 20100921
  5. CYTARABINE [Suspect]
     Dosage: 280 MG
     Dates: end: 20101001
  6. DEXAMETHASONE [Suspect]
     Dosage: 70 MG
     Dates: end: 20100905
  7. DOXORUBICIN HYDROCHLORIDE [Suspect]
     Dosage: 36.75 MG
     Dates: end: 20100824
  8. METHOTREXATE [Suspect]
     Dosage: 30 MG
     Dates: end: 20100928

REACTIONS (2)
  - HYPERGLYCAEMIA [None]
  - INFECTION [None]
